FAERS Safety Report 7598246-7 (Version None)
Quarter: 2011Q3

REPORT INFORMATION
  Report Type: 
  Country: None (occurrence: None)
  Receive Date: 20110708
  Receipt Date: 20110704
  Transmission Date: 20111222
  Serious: Yes (Other)
  Sender: FDA-Public Use
  Company Number: DE-ROCHE-787430

PATIENT
  Age: 78 Year
  Sex: Female

DRUGS (3)
  1. IBANDRONATE SODIUM [Suspect]
     Route: 065
     Dates: start: 20080401, end: 20080701
  2. CORTISONE ACETATE [Concomitant]
  3. ZOLEDRONIC [Suspect]
     Route: 042
     Dates: start: 20060901, end: 20080301

REACTIONS (2)
  - OSTEONECROSIS OF JAW [None]
  - PROSTHESIS USER [None]
